FAERS Safety Report 6157215-4 (Version None)
Quarter: 2009Q2

REPORT INFORMATION
  Report Type: 
  Country: None (occurrence: None)
  Receive Date: 20090416
  Receipt Date: 20090407
  Transmission Date: 20091009
  Serious: Yes (Life-Threatening, Hospitalization)
  Sender: FDA-Public Use
  Company Number: ES-MERCK-0904ESP00018

PATIENT
  Age: 29 Year
  Sex: Female

DRUGS (6)
  1. MAXALT [Suspect]
     Indication: MIGRAINE
     Route: 048
     Dates: start: 20090122, end: 20090125
  2. PREDNISONE [Concomitant]
     Indication: MIGRAINE
     Route: 048
     Dates: start: 20090122, end: 20090122
  3. ZOLMITRIPTAN [Suspect]
     Indication: MIGRAINE
     Dates: start: 20090122, end: 20090123
  4. FLURPAX [Suspect]
     Indication: MIGRAINE
     Route: 048
     Dates: start: 20081029, end: 20090123
  5. NOLOTIL [Suspect]
     Indication: MIGRAINE
     Route: 048
     Dates: start: 20090113, end: 20090123
  6. VOLTAREN [Suspect]
     Indication: MIGRAINE
     Route: 030
     Dates: start: 20090115, end: 20090115

REACTIONS (3)
  - BLOOD PRESSURE [None]
  - DRUG INTERACTION [None]
  - RENAL FAILURE ACUTE [None]
